FAERS Safety Report 11176178 (Version 1)
Quarter: 2015Q2

REPORT INFORMATION
  Report Type: Spontaneous
  Country: US (occurrence: None)
  Receive Date: 20150608
  Receipt Date: 20150608
  Transmission Date: 20150821
  Serious: Yes (Disabling)
  Sender: FDA-Public Use
  Company Number: None

PATIENT
  Age: 55 Year
  Sex: Female
  Weight: 52.16 kg

DRUGS (16)
  1. VITAMIN D [Concomitant]
     Active Substance: CHOLECALCIFEROL
  2. CHILDRENS MULTI VITAMIN [Concomitant]
  3. FENTYNL [Concomitant]
  4. NEURONTIN [Concomitant]
     Active Substance: GABAPENTIN
  5. METHOTREXATE [Concomitant]
     Active Substance: METHOTREXATE
  6. NORCO [Concomitant]
     Active Substance: ACETAMINOPHEN\HYDROCODONE BITARTRATE
  7. PHENERGAN [Concomitant]
     Active Substance: PROMETHAZINE HYDROCHLORIDE
  8. VITAMIN B12 [Concomitant]
     Active Substance: CYANOCOBALAMIN
  9. PRISTIQ EXTENDED RELEASE [Concomitant]
     Active Substance: DESVENLAFAXINE SUCCINATE
  10. FORTEO [Suspect]
     Active Substance: TERIPARATIDE
     Indication: OSTEOPOROSIS
     Dosage: 0.08 ML DAILY  ONCE DAILY GIVEN INTO/UNDER THE SKIN
     Route: 058
  11. FOLIC ACID. [Concomitant]
     Active Substance: FOLIC ACID
  12. MAGNESIUM [Concomitant]
     Active Substance: MAGNESIUM
  13. ABILIFY [Concomitant]
     Active Substance: ARIPIPRAZOLE
  14. OMEMPROSOLE [Concomitant]
  15. CALCIUM [Concomitant]
     Active Substance: CALCIUM
  16. VIT A [Concomitant]

REACTIONS (2)
  - Rash generalised [None]
  - Purpura [None]

NARRATIVE: CASE EVENT DATE: 20150606
